FAERS Safety Report 6895300-X (Version None)
Quarter: 2010Q3

REPORT INFORMATION
  Report Type: 
  Country: None (occurrence: None)
  Receive Date: 20100802
  Receipt Date: 20100719
  Transmission Date: 20110219
  Serious: No
  Sender: FDA-Public Use
  Company Number: US-B.I. PHARMACEUTICALS,INC./RIDGEFIELD-2010-BP-08465BP

PATIENT
  Sex: Female

DRUGS (3)
  1. SPIRIVA [Suspect]
     Indication: CHRONIC OBSTRUCTIVE PULMONARY DISEASE
     Dosage: 18 MCG
     Route: 055
     Dates: start: 20100519, end: 20100718
  2. SPIRONOLACTONE [Concomitant]
     Indication: HYPERTENSION
     Dosage: 25 MG
     Route: 048
  3. TOPROL-XL [Concomitant]
     Indication: HYPERTENSION
     Dosage: 20 MG
     Route: 048

REACTIONS (9)
  - DRY MOUTH [None]
  - EYE PAIN [None]
  - FATIGUE [None]
  - LACRIMATION INCREASED [None]
  - MICTURITION URGENCY [None]
  - NOCTURIA [None]
  - URINARY TRACT DISORDER [None]
  - URINE OUTPUT DECREASED [None]
  - VISION BLURRED [None]
